FAERS Safety Report 10555094 (Version 1)
Quarter: 2014Q4

REPORT INFORMATION
  Report Type: Spontaneous
  Country: FR (occurrence: FR)
  Receive Date: 20141030
  Receipt Date: 20141030
  Transmission Date: 20150529
  Serious: Yes (Hospitalization, Other)
  Sender: FDA-Public Use
  Company Number: FR-PFIZER INC-2014294265

PATIENT
  Age: 64 Year
  Sex: Male

DRUGS (7)
  1. LYRICA [Suspect]
     Active Substance: PREGABALIN
     Indication: PAIN IN EXTREMITY
     Dosage: 25 MG, 2X/DAY
     Route: 048
     Dates: start: 20130527, end: 201306
  2. MYTELASE [Concomitant]
     Active Substance: AMBENONIUM CHLORIDE
  3. METFORMIN [Concomitant]
     Active Substance: METFORMIN HYDROCHLORIDE
  4. TAREG [Concomitant]
     Active Substance: VALSARTAN
     Dosage: 40 MG
  5. IMUREL [Concomitant]
     Active Substance: AZATHIOPRINE SODIUM
     Dosage: 50 MG
  6. SMECTA [Concomitant]
     Active Substance: MONTMORILLONITE
  7. JANUMET [Concomitant]
     Active Substance: METFORMIN HYDROCHLORIDE\SITAGLIPTIN PHOSPHATE
     Dosage: 50 MG/1000 MG

REACTIONS (4)
  - Viral infection [Unknown]
  - Dysphagia [Recovered/Resolved]
  - Pneumonia aspiration [Unknown]
  - Odynophagia [Unknown]

NARRATIVE: CASE EVENT DATE: 201306
